FAERS Safety Report 10125725 (Version 2)
Quarter: 2014Q4

REPORT INFORMATION
  Report Type: Other
  Country: US (occurrence: US)
  Receive Date: 20140425
  Receipt Date: 20141210
  Transmission Date: 20150528
  Serious: Yes (Hospitalization, Other)
  Sender: FDA-Public Use
  Company Number: US-GSKPPD-2014GSK008328

PATIENT
  Age: 51 Year
  Sex: Female

DRUGS (4)
  1. HYDROCHLOROTHIAZIDE. [Concomitant]
     Active Substance: HYDROCHLOROTHIAZIDE
     Route: 048
  2. MONOPRIL [Concomitant]
     Active Substance: FOSINOPRIL SODIUM
     Route: 048
  3. AVANDIA [Suspect]
     Active Substance: ROSIGLITAZONE MALEATE
     Indication: DIABETES MELLITUS
     Dosage: DATES OF AVANDIA USE COULD NOT BE CONFIRMED IN RECORDS REVIEWED.
     Route: 048
  4. TRICOR [Concomitant]
     Active Substance: FENOFIBRATE
     Route: 048

REACTIONS (5)
  - Stent placement [Unknown]
  - Atrioventricular block [Unknown]
  - Coronary artery disease [Recovered/Resolved]
  - Cerebrovascular accident [Unknown]
  - Cardiac failure congestive [Unknown]

NARRATIVE: CASE EVENT DATE: 20081120
